FAERS Safety Report 8586692-4 (Version None)
Quarter: 2012Q3

REPORT INFORMATION
  Report Type: 
  Country: None (occurrence: None)
  Receive Date: 20120810
  Receipt Date: 20120806
  Transmission Date: 20120928
  Serious: Yes (Hospitalization)
  Sender: FDA-Public Use
  Company Number: BE-PFIZER INC-2012192191

PATIENT
  Sex: Male
  Weight: 72 kg

DRUGS (7)
  1. GENOTROPIN [Suspect]
     Dosage: 1 MG, 7/WK
     Route: 058
     Dates: start: 20050413
  2. FENOFIBRATE [Concomitant]
     Indication: HYPERLIPIDAEMIA
     Dosage: UNK
     Dates: start: 19960715
  3. TESTOSTERONE [Concomitant]
     Indication: HYPOGONADISM
     Dosage: UNK
     Dates: start: 19860315
  4. HYDROCORTISONE [Concomitant]
     Indication: BLOOD CORTICOTROPHIN DECREASED
     Dosage: UNK
     Dates: start: 20020602
  5. PERINDOPRIL ERBUMINE [Concomitant]
     Indication: HYPERTENSION
     Dosage: UNK
     Dates: start: 20050413
  6. ACETYLSALICYLIC ACID [Concomitant]
     Indication: ARTERITIS
     Dosage: UNK
     Dates: start: 19970628
  7. LEVOTHYROXINE [Concomitant]
     Indication: HYPOTHYROIDISM
     Dosage: UNK
     Dates: start: 20030416

REACTIONS (1)
  - CARDIOVASCULAR DISORDER [None]
